FAERS Safety Report 7211768-3 (Version None)
Quarter: 2011Q1

REPORT INFORMATION
  Report Type: 
  Country: None (occurrence: None)
  Receive Date: 20110105
  Receipt Date: 20101229
  Transmission Date: 20110831
  Serious: Yes (Life-Threatening, Hospitalization)
  Sender: FDA-Public Use
  Company Number: GB-WATSON-2010-16424

PATIENT
  Sex: Female

DRUGS (2)
  1. METOPROLOL TARTRATE [Suspect]
     Indication: TACHYARRHYTHMIA
     Dosage: 25 MG, SINGLE
  2. AMIODARONE [Suspect]
     Indication: SUPRAVENTRICULAR TACHYCARDIA
     Dosage: UNK

REACTIONS (3)
  - POTENTIATING DRUG INTERACTION [None]
  - CARDIAC ARREST [None]
  - CARDIOVASCULAR INSUFFICIENCY [None]
